FAERS Safety Report 5036833-0 (Version None)
Quarter: 2006Q2

REPORT INFORMATION
  Report Type: 
  Country: None (occurrence: None)
  Receive Date: 20060623
  Receipt Date: 20060608
  Transmission Date: 20061013
  Serious: Yes (Hospitalization)
  Sender: FDA-Public Use
  Company Number: 2006072714

PATIENT
  Age: 65 Year
  Sex: Male
  Weight: 54 kg

DRUGS (6)
  1. SUTENT [Suspect]
     Indication: METASTATIC RENAL CELL CARCINOMA
     Dosage: 50 MG (50 MG OD INTERVAL: DAILY) ORAL
     Route: 048
     Dates: start: 20060310, end: 20060406
  2. DEXAMETHASONE [Concomitant]
  3. ACETYLDIGOXIN (ACETYLDIGOXIN) [Concomitant]
  4. METOCLOPRAMIDE [Concomitant]
  5. TRAMADOL HCL [Concomitant]
  6. KAMISTAD-GEL (HERBAL EXTRACTS NOS, LIDOCAINE, THYMOL) [Concomitant]

REACTIONS (2)
  - GENERAL PHYSICAL HEALTH DETERIORATION [None]
  - MALIGNANT NEOPLASM PROGRESSION [None]
